FAERS Safety Report 8894873 (Version 1)
Quarter: 2012Q4

REPORT INFORMATION
  Report Type: 
  Country: CA (occurrence: CA)
  Receive Date: 20121107
  Receipt Date: 20121107
  Transmission Date: 20130627
  Serious: Yes (Other)
  Sender: FDA-Public Use
  Company Number: PHHO2005CA06158

PATIENT
  Sex: Male

DRUGS (5)
  1. SANDOSTATIN LAR (PATIENT BASIS) [Suspect]
     Indication: VIPOMA
     Dosage: 10 mg, once a month
     Dates: start: 20050317
  2. SANDOSTATIN LAR (PATIENT BASIS) [Suspect]
     Dosage: 30 mg, QMO
  3. PANTOLOC [Concomitant]
  4. AVANDIA [Concomitant]
  5. VIAGRA [Concomitant]

REACTIONS (3)
  - Hypotension [Unknown]
  - Blood pressure decreased [Recovering/Resolving]
  - Hyperglycaemia [Unknown]
